FAERS Safety Report 6068994-9 (Version None)
Quarter: 2009Q1

REPORT INFORMATION
  Report Type: 
  Country: None (occurrence: None)
  Receive Date: 20090206
  Receipt Date: 20090202
  Transmission Date: 20090719
  Serious: No
  Sender: FDA-Public Use
  Company Number: US-BAYER-200910352BCC

PATIENT
  Sex: Female

DRUGS (2)
  1. ALEVE [Suspect]
     Indication: INTENTIONAL OVERDOSE
     Dates: start: 20090202
  2. ALCOHOL [Concomitant]

REACTIONS (1)
  - NO ADVERSE EVENT [None]
